FAERS Safety Report 5453420-0 (Version None)
Quarter: 2007Q3

REPORT INFORMATION
  Report Type: 
  Country: None (occurrence: None)
  Receive Date: 20070913
  Receipt Date: 20070831
  Transmission Date: 20080115
  Serious: Yes (Death)
  Sender: FDA-Public Use
  Company Number: MC200700591

PATIENT

DRUGS (1)
  1. ANGIOMAX [Suspect]
     Dates: start: 20070801, end: 20070801

REACTIONS (1)
  - INJURY [None]
